FAERS Safety Report 20812139 (Version 1)
Quarter: 2022Q2

REPORT INFORMATION
  Report Type: Report from Study
  Country: CA (occurrence: CA)
  Receive Date: 20220511
  Receipt Date: 20220511
  Transmission Date: 20220720
  Serious: Yes (Other)
  Sender: FDA-Public Use
  Company Number: CA-CELLTRION INC.-2021CA008239

PATIENT

DRUGS (2)
  1. TRUXIMA [Suspect]
     Active Substance: RITUXIMAB-ABBS
     Indication: Mixed connective tissue disease
     Dosage: 1000 MILLIGRAM
     Route: 042
     Dates: start: 20210531, end: 20210531
  2. TRUXIMA [Suspect]
     Active Substance: RITUXIMAB-ABBS
     Dosage: 1000 MILLIGRAM
     Route: 042
     Dates: start: 20210531

REACTIONS (5)
  - COVID-19 [Unknown]
  - Intentional dose omission [Unknown]
  - Treatment delayed [Unknown]
  - Product dose omission issue [Unknown]
  - Off label use [Unknown]
